FAERS Safety Report 19884650 (Version 1)
Quarter: 2021Q3

REPORT INFORMATION
  Report Type: Spontaneous
  Country: ES (occurrence: ES)
  Receive Date: 20210927
  Receipt Date: 20210927
  Transmission Date: 20211014
  Serious: Yes (Hospitalization)
  Sender: FDA-Public Use
  Company Number: ES-SUN PHARMACEUTICAL INDUSTRIES LTD-2021RR-301945

PATIENT
  Age: 77 Year
  Sex: Female

DRUGS (6)
  1. CEFUROXIME. [Suspect]
     Active Substance: CEFUROXIME
     Indication: PRODUCT USED FOR UNKNOWN INDICATION
     Dosage: ()
     Route: 065
     Dates: start: 2021, end: 2021
  2. LOSARTAN/HIDROCLOROTIAZIDA 50 MG/12,5 MG COMPRIMIDO [Suspect]
     Active Substance: HYDROCHLOROTHIAZIDE\LOSARTAN
     Indication: HYPERTENSION
     Dosage: ()
     Route: 065
     Dates: start: 2021, end: 2021
  3. OMEPRAZOLE. [Suspect]
     Active Substance: OMEPRAZOLE
     Indication: PRODUCT USED FOR UNKNOWN INDICATION
     Dosage: ()
     Route: 065
     Dates: start: 2021, end: 2021
  4. COMIRNATY [Suspect]
     Active Substance: TOZINAMERAN
     Dosage: 2 DOSIS ADMINISTRADAS ? LUGAR ADMINISTRACI?N: DESCONOCIDO ()
     Route: 065
     Dates: start: 20210406, end: 20210406
  5. BROMAZEPAM [Suspect]
     Active Substance: BROMAZEPAM
     Indication: ANXIETY
     Dosage: ()
     Route: 065
     Dates: start: 2021, end: 2021
  6. COMIRNATY [Suspect]
     Active Substance: TOZINAMERAN
     Indication: COVID-19 IMMUNISATION
     Dosage: 2 DOSIS ADMINISTRADAS ? LUGAR ADMINISTRACI?N: DESCONOCIDO ()
     Route: 065
     Dates: start: 20210427, end: 20210427

REACTIONS (1)
  - Hepatitis toxic [Recovering/Resolving]
